FAERS Safety Report 8062815-0 (Version None)
Quarter: 2012Q1

REPORT INFORMATION
  Report Type: 
  Country: None (occurrence: None)
  Receive Date: 20120123
  Receipt Date: 20120109
  Transmission Date: 20120608
  Serious: Yes (Death)
  Sender: FDA-Public Use
  Company Number: CH-ROCHE-1010159

PATIENT
  Age: 86 Year
  Sex: Female

DRUGS (24)
  1. DIGOXIN [Suspect]
     Route: 048
     Dates: start: 20110905
  2. PREDNISONE [Suspect]
     Route: 048
     Dates: start: 20110906, end: 20110909
  3. PARAGOL [Concomitant]
     Indication: CONSTIPATION
     Route: 048
     Dates: start: 20110829, end: 20110909
  4. SEROQUEL [Suspect]
     Indication: PRODUCT USED FOR UNKNOWN INDICATION
     Dosage: WITH INCREASING DOSE TO 35 MG DAILY
     Route: 048
     Dates: start: 20110831, end: 20110906
  5. POTASSIUM CHLORIDE [Suspect]
     Indication: HYPOKALAEMIA
     Route: 048
     Dates: start: 20110826, end: 20110909
  6. BISOPROLOL FUMARATE [Concomitant]
     Dates: start: 20110909
  7. HALDOL [Concomitant]
     Route: 048
     Dates: start: 20110906, end: 20110909
  8. RAMIPRIL [Concomitant]
     Dates: end: 20110810
  9. TORSEMIDE [Suspect]
     Indication: CARDIAC FAILURE
     Route: 048
     Dates: start: 20110809, end: 20110809
  10. DIGOXIN [Suspect]
     Indication: CARDIAC FAILURE
     Route: 048
     Dates: start: 20110810
  11. POTASSIUM BICARBONATE [Suspect]
     Indication: HYPOKALAEMIA
     Route: 048
     Dates: end: 20110809
  12. KONAKION [Suspect]
     Indication: PRODUCT USED FOR UNKNOWN INDICATION
     Route: 048
     Dates: start: 20110902, end: 20110909
  13. JANUVIA [Concomitant]
     Dates: start: 20110601, end: 20110909
  14. ACETAMINOPHEN [Concomitant]
     Route: 048
     Dates: start: 20110801
  15. MARCUMAR [Suspect]
     Indication: ATRIAL FIBRILLATION
     Route: 048
     Dates: start: 20110501, end: 20110901
  16. SEROQUEL [Suspect]
     Route: 048
     Dates: end: 20110906
  17. KONAKION [Suspect]
     Route: 042
     Dates: start: 20110910, end: 20110910
  18. NOVALGIN [Concomitant]
     Route: 048
     Dates: start: 20110909, end: 20110909
  19. LIDOCAINE HCL [Concomitant]
     Indication: ANAL HAEMORRHAGE
     Dates: start: 20110901, end: 20110909
  20. DIGOXIN [Suspect]
     Route: 048
     Dates: start: 20110909, end: 20110909
  21. PREDNISONE [Suspect]
     Indication: CHRONIC OBSTRUCTIVE PULMONARY DISEASE
     Route: 048
     Dates: end: 20110906
  22. FUROSEMIDE [Concomitant]
     Indication: CARDIAC FAILURE
  23. QUETIAPINE FUMARATE [Suspect]
     Indication: PRODUCT USED FOR UNKNOWN INDICATION
     Dosage: 5 MG IN EVENING
     Route: 048
     Dates: end: 20110831
  24. ACETAMINOPHEN [Concomitant]
     Route: 048
     Dates: start: 20110902, end: 20110908

REACTIONS (5)
  - GASTROINTESTINAL HAEMORRHAGE [None]
  - MELAENA [None]
  - HAEMORRHAGIC ANAEMIA [None]
  - GASTRIC ULCER [None]
  - THROMBOCYTOPENIA [None]
